FAERS Safety Report 4995546-1 (Version None)
Quarter: 2006Q2

REPORT INFORMATION
  Report Type: 
  Country: None (occurrence: None)
  Receive Date: 20060508
  Receipt Date: 20060427
  Transmission Date: 20061013
  Serious: Yes (Death, Hospitalization)
  Sender: FDA-Public Use
  Company Number: US-ROCHE-446169

PATIENT
  Age: 53 Year
  Sex: Female

DRUGS (2)
  1. PEGYLATED INTERFERON NOS [Suspect]
     Route: 058
     Dates: start: 20040615, end: 20040615
  2. RIBAVIRIN [Suspect]
     Route: 048
     Dates: start: 20040615, end: 20040615

REACTIONS (2)
  - CARDIAC ARREST [None]
  - STAPHYLOCOCCAL INFECTION [None]
